FAERS Safety Report 5111008-5 (Version None)
Quarter: 2006Q3

REPORT INFORMATION
  Report Type: 
  Country: None (occurrence: None)
  Receive Date: 20060922
  Receipt Date: 20050808
  Transmission Date: 20061208
  Serious: No
  Sender: FDA-Public Use
  Company Number: US-GLAXOSMITHKLINE-A0569339A

PATIENT
  Age: 38 Year
  Sex: Female

DRUGS (1)
  1. ABREVA [Suspect]
     Dates: start: 20050807

REACTIONS (3)
  - BURNING SENSATION [None]
  - HERPES SIMPLEX [None]
  - TENSION [None]
